FAERS Safety Report 16515873 (Version 6)
Quarter: 2019Q3

REPORT INFORMATION
  Report Type: Spontaneous
  Country: US (occurrence: US)
  Receive Date: 20190702
  Receipt Date: 20190919
  Transmission Date: 20191004
  Serious: Yes (Hospitalization, Other)
  Sender: FDA-Public Use
  Company Number: US-PFIZER INC-2019276070

PATIENT
  Age: 68 Year
  Sex: Female
  Weight: 52 kg

DRUGS (2)
  1. AROMASIN [Suspect]
     Active Substance: EXEMESTANE
     Indication: BREAST CANCER METASTATIC
     Dosage: 25 MG, 1X/DAY
     Dates: start: 201805
  2. IBRANCE [Suspect]
     Active Substance: PALBOCICLIB
     Indication: BREAST CANCER METASTATIC
     Dosage: 100 MG, 1X/DAY
     Dates: start: 201807

REACTIONS (6)
  - Cataract [Unknown]
  - Stress [Recovered/Resolved]
  - Asthenia [Recovered/Resolved]
  - Full blood count decreased [Recovered/Resolved]
  - Malaise [Recovered/Resolved]
  - Post procedural infection [Unknown]
